FAERS Safety Report 15902084 (Version 1)
Quarter: 2019Q1

REPORT INFORMATION
  Report Type: Spontaneous
  Country: TR (occurrence: TR)
  Receive Date: 20190201
  Receipt Date: 20190201
  Transmission Date: 20190417
  Serious: Yes (Hospitalization)
  Sender: FDA-Public Use
  Company Number: TR-AKRON, INC.-2062067

PATIENT
  Age: 82 Year
  Sex: Female

DRUGS (7)
  1. FOLIC ACID. [Concomitant]
     Active Substance: FOLIC ACID
     Route: 048
  2. LEFLUNOMIDE. [Concomitant]
     Active Substance: LEFLUNOMIDE
  3. METHOTHREXATE [Concomitant]
     Active Substance: METHOTREXATE SODIUM
     Route: 048
  4. GABAPENTIN. [Concomitant]
     Active Substance: GABAPENTIN
     Route: 048
  5. AMLODIPINE [Concomitant]
     Active Substance: AMLODIPINE BESYLATE
     Route: 048
  6. VITAMIN D [Suspect]
     Active Substance: CHOLECALCIFEROL
     Route: 048
  7. CALCIUM [Concomitant]
     Active Substance: CALCIUM
     Route: 048

REACTIONS (8)
  - Pulmonary oedema [Recovering/Resolving]
  - Nausea [Recovering/Resolving]
  - Pulmonary hypertension [Recovering/Resolving]
  - Hypertension [None]
  - Blood gases abnormal [Recovering/Resolving]
  - Hypercalcaemia [Recovering/Resolving]
  - Hypoxia [Recovering/Resolving]
  - Vomiting [Recovering/Resolving]
